FAERS Safety Report 9836666 (Version 1)
Quarter: 2013Q4

REPORT INFORMATION
  Report Type: Spontaneous
  Country: US (occurrence: None)
  Receive Date: 20131120
  Receipt Date: 20131120
  Transmission Date: 20140711
  Serious: No
  Sender: FDA-Public Use
  Company Number: 1000049320

PATIENT
  Sex: Female

DRUGS (3)
  1. VIIBRYD [Suspect]
     Indication: DEPRESSION
  2. VIIBRYD (VILAZODONE HYDROCHLORIDE) (20 MILLIGRAM, TABLET) [Suspect]
  3. ATIVAN (LORAZEPAM) (LORAZEPAM) [Concomitant]

REACTIONS (1)
  - Headache [None]
